FAERS Safety Report 12256601 (Version 1)
Quarter: 2016Q2

REPORT INFORMATION
  Report Type: Spontaneous
  Country: US (occurrence: None)
  Receive Date: 20160411
  Receipt Date: 20160411
  Transmission Date: 20160815
  Serious: No
  Sender: FDA-Public Use
  Company Number: None

PATIENT
  Age: 42 Year
  Sex: Female
  Weight: 74.84 kg

DRUGS (2)
  1. PREDNISONE 10 MG COMMON BRAND D, 10 MG [Suspect]
     Active Substance: PREDNISONE
     Indication: URTICARIA
     Dosage: 6 TABLET(S) ONCE A DAY TAKEN BY MOUTH
     Route: 048
  2. ZYRTEC [Concomitant]
     Active Substance: CETIRIZINE HYDROCHLORIDE

REACTIONS (4)
  - Dizziness [None]
  - Laryngitis [None]
  - Throat tightness [None]
  - Cold sweat [None]

NARRATIVE: CASE EVENT DATE: 20160408
